FAERS Safety Report 5270557-X (Version None)
Quarter: 2007Q1

REPORT INFORMATION
  Report Type: 
  Country: None (occurrence: None)
  Receive Date: 20070315
  Receipt Date: 20070303
  Transmission Date: 20070707
  Serious: Yes (Hospitalization, Other)
  Sender: FDA-Public Use
  Company Number: 2007SP002293

PATIENT
  Age: 44 Year
  Sex: Female

DRUGS (2)
  1. PEG-INTRON [Suspect]
     Indication: HEPATITIS C
     Dates: start: 20060816
  2. RIBAVIRIN [Suspect]
     Indication: HEPATITIS C
     Dosage: ; PO
     Route: 048
     Dates: start: 20060816

REACTIONS (15)
  - BRONCHITIS [None]
  - CHEST PAIN [None]
  - DECREASED APPETITE [None]
  - DEPRESSION [None]
  - FATIGUE [None]
  - HAEMATEMESIS [None]
  - HAIR DISORDER [None]
  - HEADACHE [None]
  - HEPATIC INFECTION [None]
  - HEPATIC PAIN [None]
  - HEPATOMEGALY [None]
  - PNEUMONIA [None]
  - PYREXIA [None]
  - SKIN DISCOLOURATION [None]
  - SKIN INFECTION [None]
